FAERS Safety Report 19073166 (Version 2)
Quarter: 2021Q4

REPORT INFORMATION
  Report Type: Report from Study
  Country: GB (occurrence: GB)
  Receive Date: 20210330
  Receipt Date: 20211229
  Transmission Date: 20220303
  Serious: Yes (Other)
  Sender: FDA-Public Use
  Company Number: GB-CELGENE-GBR-20210300817

PATIENT
  Age: 79 Year
  Sex: Female

DRUGS (6)
  1. DEXAMETHASONE [Suspect]
     Active Substance: DEXAMETHASONE
     Indication: Plasma cell myeloma
     Dosage: 10 MILLIGRAM DAILY;
     Route: 048
     Dates: start: 20200831, end: 20200927
  2. DEXAMETHASONE [Suspect]
     Active Substance: DEXAMETHASONE
     Dosage: 10 MILLIGRAM
     Route: 048
     Dates: start: 20201016, end: 20201112
  3. DEXAMETHASONE [Suspect]
     Active Substance: DEXAMETHASONE
     Dosage: 10 MILLIGRAM DAILY;
     Route: 048
     Dates: start: 20200803, end: 20200830
  4. REVLIMID [Suspect]
     Active Substance: LENALIDOMIDE
     Indication: Plasma cell myeloma
     Dosage: 25 MILLIGRAM DAILY;
     Route: 048
     Dates: start: 20200831, end: 20200920
  5. REVLIMID [Suspect]
     Active Substance: LENALIDOMIDE
     Dosage: 10 MILLIGRAM DAILY;
     Route: 048
     Dates: start: 20201016, end: 20201105
  6. REVLIMID [Suspect]
     Active Substance: LENALIDOMIDE
     Dosage: 25 MILLIGRAM DAILY;
     Route: 048
     Dates: start: 20200803, end: 20200823

REACTIONS (2)
  - Neutropenia [Recovered/Resolved]
  - Thrombocytopenia [Recovered/Resolved]

NARRATIVE: CASE EVENT DATE: 20210224
